FAERS Safety Report 25640587 (Version 1)
Quarter: 2025Q3

REPORT INFORMATION
  Report Type: Spontaneous
  Country: US (occurrence: US)
  Receive Date: 20250804
  Receipt Date: 20250804
  Transmission Date: 20251020
  Serious: No
  Sender: DR REDDYS
  Company Number: US-DRL-USA-USA/2025/07/009907

PATIENT
  Age: 67 Year
  Sex: Female
  Weight: 73.48 kg

DRUGS (1)
  1. NICOTINE [Suspect]
     Active Substance: NICOTINE
     Indication: Smoking cessation therapy
     Route: 062
     Dates: start: 20250512

REACTIONS (2)
  - Overdose [Unknown]
  - Abnormal dreams [Recovered/Resolved]
